FAERS Safety Report 20220397 (Version 1)
Quarter: 2021Q4

REPORT INFORMATION
  Report Type: Spontaneous
  Country: FR (occurrence: FR)
  Receive Date: 20211223
  Receipt Date: 20211223
  Transmission Date: 20220303
  Serious: Yes (Other)
  Sender: FDA-Public Use
  Company Number: FR-AFSSAPS-AVPO20211840

PATIENT
  Age: 30 Year
  Sex: Male

DRUGS (6)
  1. LOPERAMIDE [Suspect]
     Active Substance: LOPERAMIDE
     Indication: Suicidal ideation
     Dosage: UNKNOWN
     Route: 048
     Dates: start: 20211001, end: 20211001
  2. ACETAMINOPHEN [Suspect]
     Active Substance: ACETAMINOPHEN
     Indication: Suicidal ideation
     Dosage: UNKNOWN
     Route: 048
     Dates: start: 20211001, end: 20211001
  3. DIAMORPHINE [Suspect]
     Active Substance: DIAMORPHINE
     Indication: Product used for unknown indication
     Dosage: UNKNOWN
     Route: 065
     Dates: start: 20211001, end: 20211001
  4. ALCOHOL [Suspect]
     Active Substance: ALCOHOL
     Indication: Product used for unknown indication
     Dosage: UNKNOWN
     Route: 048
     Dates: start: 20211001, end: 20211001
  5. KETOPROFEN [Suspect]
     Active Substance: KETOPROFEN
     Indication: Suicidal ideation
     Dosage: UNKNOWN
     Route: 048
     Dates: start: 20211001, end: 20211001
  6. METOPIMAZINE [Suspect]
     Active Substance: METOPIMAZINE
     Indication: Suicidal ideation
     Dosage: UNKNOWN
     Route: 048
     Dates: start: 20211001, end: 20211001

REACTIONS (3)
  - Drug abuse [Not Recovered/Not Resolved]
  - Suicidal ideation [Recovered/Resolved]
  - Poisoning deliberate [Recovered/Resolved]

NARRATIVE: CASE EVENT DATE: 20211001
